FAERS Safety Report 4615157-7 (Version None)
Quarter: 2005Q1

REPORT INFORMATION
  Report Type: 
  Country: None (occurrence: None)
  Receive Date: 20050315
  Receipt Date: 20050301
  Transmission Date: 20050727
  Serious: Yes (Death)
  Sender: FDA-Public Use
  Company Number: US_0503113812

PATIENT
  Age: 24 Year

DRUGS (3)
  1. ZYPREXA [Suspect]
     Dates: end: 20030101
  2. AMPHETAMINE [Concomitant]
  3. MARIJUANA [Concomitant]

REACTIONS (4)
  - ASPIRATION [None]
  - CARDIO-RESPIRATORY ARREST [None]
  - DRUG TOXICITY [None]
  - MULTIPLE DRUG OVERDOSE [None]
